FAERS Safety Report 8284570-1 (Version None)
Quarter: 2012Q2

REPORT INFORMATION
  Report Type: 
  Country: None (occurrence: None)
  Receive Date: 20120413
  Receipt Date: 20120227
  Transmission Date: 20120825
  Serious: No
  Sender: FDA-Public Use
  Company Number: US-ASTRAZENECA-2012SE13641

PATIENT
  Age: 82 Year
  Sex: Female

DRUGS (3)
  1. NEXIUM [Suspect]
     Indication: GASTROOESOPHAGEAL REFLUX DISEASE
     Route: 048
  2. BYSTOLIC [Concomitant]
     Indication: CARDIAC DISORDER
  3. ASPIRIN [Concomitant]
     Indication: CARDIAC DISORDER

REACTIONS (2)
  - OROPHARYNGEAL PAIN [None]
  - DRUG DOSE OMISSION [None]
